FAERS Safety Report 8004629-3 (Version None)
Quarter: 2011Q4

REPORT INFORMATION
  Report Type: 
  Country: None (occurrence: None)
  Receive Date: 20111223
  Receipt Date: 20111214
  Transmission Date: 20120403
  Serious: Yes (Hospitalization)
  Sender: FDA-Public Use
  Company Number: US-JNJFOC-20111207322

PATIENT
  Sex: Male
  Weight: 61.3 kg

DRUGS (4)
  1. MERCAPTOPURINE [Concomitant]
  2. CLINDAMYCIN [Concomitant]
  3. REMICADE [Suspect]
     Indication: CROHN'S DISEASE
     Route: 042
     Dates: start: 20050515
  4. PREDNISONE TAB [Concomitant]

REACTIONS (1)
  - CROHN'S DISEASE [None]
